FAERS Safety Report 4570040-0 (Version None)
Quarter: 2005Q1

REPORT INFORMATION
  Report Type: 
  Country: None (occurrence: None)
  Receive Date: 20050204
  Receipt Date: 20041019
  Transmission Date: 20050727
  Serious: Yes (Other)
  Sender: FDA-Public Use
  Company Number: CA-ABBOTT-04P-028-0278295-00

PATIENT
  Sex: Male

DRUGS (2)
  1. VALPROIC ACID SYRUP [Suspect]
     Indication: CONVULSION PROPHYLAXIS
     Dates: start: 20040831, end: 20040914
  2. RANITIDINE [Concomitant]
     Indication: DRUG USE FOR UNKNOWN INDICATION

REACTIONS (1)
  - CONVULSION [None]
